FAERS Safety Report 20739526 (Version 1)
Quarter: 2022Q2

REPORT INFORMATION
  Report Type: Report from Study
  Country: MX (occurrence: MX)
  Receive Date: 20220422
  Receipt Date: 20220422
  Transmission Date: 20220721
  Serious: Yes (Other)
  Sender: FDA-Public Use
  Company Number: MX-NOVARTISPH-NVSC2022MX069156

PATIENT
  Sex: Female
  Weight: 56 kg

DRUGS (4)
  1. METFORMIN HYDROCHLORIDE\VILDAGLIPTIN [Suspect]
     Active Substance: METFORMIN HYDROCHLORIDE\VILDAGLIPTIN
     Indication: Diabetes mellitus
     Dosage: UNK (1 TABLET IN THE MORNING, ? TABLET IN THE AFTERNOON, AND 1 TABLET AT NIGHT)
     Route: 048
     Dates: start: 2007, end: 2008
  2. VILDAGLIPTIN [Suspect]
     Active Substance: VILDAGLIPTIN
     Indication: Diabetes mellitus
     Dosage: 50 MG, BID
     Route: 048
     Dates: start: 2010
  3. VILDAGLIPTIN [Suspect]
     Active Substance: VILDAGLIPTIN
     Dosage: 50 MG, (IN THE MORNING AND IN THE MEAL)
     Route: 048
     Dates: start: 2010
  4. METFORMIN [Concomitant]
     Active Substance: METFORMIN HYDROCHLORIDE
     Indication: Diabetes mellitus
     Dosage: 850 MG, (IN THE MORNING AND AT NIGHT)
     Route: 048
     Dates: start: 2010

REACTIONS (10)
  - COVID-19 [Recovered/Resolved with Sequelae]
  - Oxygen saturation decreased [Unknown]
  - Pyrexia [Unknown]
  - Myalgia [Unknown]
  - Weight decreased [Unknown]
  - Cardiomegaly [Unknown]
  - Ill-defined disorder [Unknown]
  - Fluid retention [Recovering/Resolving]
  - Weight increased [Unknown]
  - Arthralgia [Recovering/Resolving]

NARRATIVE: CASE EVENT DATE: 20200101
